FAERS Safety Report 6239848-X (Version None)
Quarter: 2009Q2

REPORT INFORMATION
  Report Type: 
  Country: None (occurrence: None)
  Receive Date: 20090623
  Receipt Date: 20090612
  Transmission Date: 20091009
  Serious: Yes (Hospitalization)
  Sender: FDA-Public Use
  Company Number: US-BIOGENIDEC-2009BI010873

PATIENT
  Age: 51 Year
  Sex: Male

DRUGS (2)
  1. AVONEX [Suspect]
     Indication: MULTIPLE SCLEROSIS
     Route: 030
     Dates: start: 20010401
  2. CELLCEPT [Concomitant]
     Indication: MULTIPLE SCLEROSIS

REACTIONS (2)
  - CHILLS [None]
  - OESOPHAGEAL CARCINOMA [None]
